FAERS Safety Report 5449494-3 (Version None)
Quarter: 2007Q3

REPORT INFORMATION
  Report Type: 
  Country: None (occurrence: None)
  Receive Date: 20070907
  Receipt Date: 20070724
  Transmission Date: 20080115
  Serious: Yes (Life-Threatening, Hospitalization, Other)
  Sender: FDA-Public Use
  Company Number: 2007US-09275

PATIENT
  Age: 64 Year
  Sex: Female

DRUGS (7)
  1. ISOPTIN SR [Suspect]
     Indication: ATRIAL FIBRILLATION
     Dosage: 80 MG, TID, ORAL
     Route: 048
  2. SOTOLOL () UNKNOWN [Suspect]
     Indication: ATRIAL FIBRILLATION
     Dosage: ORAL
     Route: 048
  3. DIGOXIN [Suspect]
     Indication: DRUG USE FOR UNKNOWN INDICATION
     Dosage: ORAL
     Route: 048
  4. WARFARIN SODIUM [Concomitant]
  5. FUMARIL [Concomitant]
  6. PERINDOPRIL UNKNOWN [Concomitant]
  7. CO-AMILOFRUS [Concomitant]

REACTIONS (24)
  - ABDOMINAL DISCOMFORT [None]
  - ABDOMINAL PAIN [None]
  - ABDOMINAL TENDERNESS [None]
  - ANURIA [None]
  - AORTIC DISSECTION [None]
  - ATRIAL FIBRILLATION [None]
  - BRADYCARDIA [None]
  - CARDIOGENIC SHOCK [None]
  - COUGH [None]
  - DEPRESSED LEVEL OF CONSCIOUSNESS [None]
  - DRUG INTERACTION [None]
  - DRUG TOXICITY [None]
  - DYSPNOEA [None]
  - EMBOLISM [None]
  - HAEMODIALYSIS [None]
  - HYPOTENSION [None]
  - IATROGENIC INJURY [None]
  - INTESTINAL ISCHAEMIA [None]
  - LIVEDO RETICULARIS [None]
  - METABOLIC ACIDOSIS [None]
  - MYOCARDIAL INFARCTION [None]
  - NO THERAPEUTIC RESPONSE [None]
  - PULSE ABSENT [None]
  - RESPIRATORY TRACT INFECTION [None]
